FAERS Safety Report 5380777-1 (Version None)
Quarter: 2007Q3

REPORT INFORMATION
  Report Type: 
  Country: None (occurrence: None)
  Receive Date: 20070706
  Receipt Date: 20070703
  Transmission Date: 20080115
  Serious: Yes (Life-Threatening, Hospitalization)
  Sender: FDA-Public Use
  Company Number: B0462167A

PATIENT
  Age: 75 Year
  Sex: Female

DRUGS (10)
  1. VALTREX [Suspect]
     Indication: HERPES ZOSTER
     Dosage: 500MG SEE DOSAGE TEXT
     Route: 048
     Dates: start: 20051201, end: 20051205
  2. ASPIRIN [Concomitant]
     Route: 048
  3. ONEALFA [Concomitant]
     Route: 048
  4. DIGOSIN [Concomitant]
     Route: 065
  5. RISUMIC [Concomitant]
     Route: 048
  6. VASOLAN [Concomitant]
     Route: 065
  7. CALTAN [Concomitant]
     Route: 048
  8. PANSPORIN [Concomitant]
  9. CEFZON [Concomitant]
     Route: 048
  10. ULGUT [Concomitant]
     Route: 048

REACTIONS (3)
  - HYPERKALAEMIA [None]
  - MUSCULAR WEAKNESS [None]
  - SPEECH DISORDER [None]
